FAERS Safety Report 17043270 (Version 2)
Quarter: 2020Q1

REPORT INFORMATION
  Report Type: Spontaneous
  Country: IT (occurrence: IT)
  Receive Date: 20191118
  Receipt Date: 20200102
  Transmission Date: 20200409
  Serious: Yes (Other)
  Sender: FDA-Public Use
  Company Number: IT-PFIZER INC-2019493860

PATIENT
  Age: 75 Year
  Sex: Female

DRUGS (7)
  1. LOSARTAN. [Concomitant]
     Active Substance: LOSARTAN
     Dosage: UNK
  2. HYDROXYCHLOROQUINE [Concomitant]
     Active Substance: HYDROXYCHLOROQUINE
     Dosage: UNK
     Route: 065
  3. MEDROL [Concomitant]
     Active Substance: METHYLPREDNISOLONE
     Dosage: UNK
  4. RANEXA [Concomitant]
     Active Substance: RANOLAZINE
     Dosage: UNK
     Route: 065
  5. PANTOPRAZOLE [Suspect]
     Active Substance: PANTOPRAZOLE
     Dosage: UNK
  6. FORSTEO [Suspect]
     Active Substance: TERIPARATIDE
     Dosage: UNK
     Dates: start: 20180511
  7. ASCRIPTIN [Concomitant]
     Active Substance: ASPIRIN
     Dosage: UNK

REACTIONS (6)
  - Gastric polyps [Unknown]
  - Pain in extremity [Unknown]
  - Incorrect product administration duration [Unknown]
  - Pancreatitis [Unknown]
  - Fatigue [Recovered/Resolved]
  - Muscular weakness [Recovered/Resolved]

NARRATIVE: CASE EVENT DATE: 20191209
